FAERS Safety Report 9710546 (Version 1)
Quarter: 2013Q4

REPORT INFORMATION
  Report Type: Spontaneous
  Country: US (occurrence: US)
  Receive Date: 20131126
  Receipt Date: 20131126
  Transmission Date: 20140711
  Serious: No
  Sender: FDA-Public Use
  Company Number: US-BRISTOL-MYERS SQUIBB COMPANY-18876839

PATIENT
  Age: 68 Year
  Sex: Male
  Weight: 124.71 kg

DRUGS (4)
  1. BYETTA [Suspect]
     Indication: TYPE 2 DIABETES MELLITUS
     Dates: start: 201206
  2. METFORMIN HCL [Suspect]
  3. NOVOLOG [Suspect]
  4. INSULIN [Suspect]

REACTIONS (2)
  - Blood glucose decreased [Recovering/Resolving]
  - Weight decreased [Unknown]
